FAERS Safety Report 8780294 (Version 1)
Quarter: 2012Q4

REPORT INFORMATION
  Report Type: Spontaneous
  Country: US (occurrence: None)
  Receive Date: 20120829
  Receipt Date: 20120829
  Transmission Date: 20130627
  Serious: Yes (Hospitalization)
  Sender: FDA-Public Use
  Company Number: GB-DEXPHARM-20121116

PATIENT
  Sex: Male

DRUGS (1)
  1. SEROQUEL XL [Suspect]
     Indication: ANXIETY
     Route: 064
     Dates: start: 20110323, end: 20110910

REACTIONS (7)
  - Maternal drugs affecting foetus [None]
  - Drug withdrawal syndrome neonatal [None]
  - Hypocalcaemia [None]
  - Pneumothorax [None]
  - Premature baby [None]
  - Neonatal respiratory distress syndrome [None]
  - Caesarean section [None]
